FAERS Safety Report 20922347 (Version 1)
Quarter: 2022Q2

REPORT INFORMATION
  Report Type: Spontaneous
  Country: US (occurrence: US)
  Receive Date: 20220607
  Receipt Date: 20220607
  Transmission Date: 20220721
  Serious: No
  Sender: FDA-Public Use
  Company Number: US-TEVA-2022-US-2042392

PATIENT
  Age: 66 Year
  Sex: Female

DRUGS (1)
  1. AUSTEDO [Suspect]
     Active Substance: DEUTETRABENAZINE
     Dosage: 15 MILLIGRAM DAILY; 6MG+9MG
     Route: 065
     Dates: start: 202204

REACTIONS (3)
  - Memory impairment [Unknown]
  - Panic disorder [Unknown]
  - Anxiety [Unknown]
